FAERS Safety Report 9439754 (Version 1)
Quarter: 2013Q3

REPORT INFORMATION
  Report Type: Spontaneous
  Country: US (occurrence: US)
  Receive Date: 20130805
  Receipt Date: 20130805
  Transmission Date: 20140515
  Serious: No
  Sender: FDA-Public Use
  Company Number: US-009507513-1307USA016899

PATIENT
  Age: 8 Year
  Sex: Male

DRUGS (2)
  1. DULERA [Suspect]
     Indication: ASTHMA
     Dosage: 100/5 MCG, 2 PUFFS TWICE PER DAY
     Route: 055
     Dates: start: 201207
  2. DULERA [Suspect]
     Indication: ASTHMA
     Dosage: 200/5 MCG
     Route: 055

REACTIONS (3)
  - Drug administered to patient of inappropriate age [Unknown]
  - Off label use [Unknown]
  - No adverse event [Unknown]
